FAERS Safety Report 4549484-9 (Version None)
Quarter: 2005Q1

REPORT INFORMATION
  Report Type: 
  Country: None (occurrence: None)
  Receive Date: 20050110
  Receipt Date: 20050110
  Transmission Date: 20050727
  Serious: Yes (Other)
  Sender: FDA-Public Use
  Company Number: None

PATIENT
  Sex: Male
  Weight: 104.3273 kg

DRUGS (1)
  1. HYDROXYZINE HCL [Suspect]
     Indication: PRURITUS
     Dosage: ONE AT NIGHT ORAL
     Route: 048
     Dates: start: 20050103, end: 20050107

REACTIONS (2)
  - BLOOD PRESSURE INCREASED [None]
  - HEART RATE INCREASED [None]
